FAERS Safety Report 10753914 (Version 2)
Quarter: 2015Q1

REPORT INFORMATION
  Report Type: Spontaneous
  Country: US (occurrence: US)
  Receive Date: 20150202
  Receipt Date: 20150303
  Transmission Date: 20150721
  Serious: Yes (Hospitalization, Other)
  Sender: FDA-Public Use
  Company Number: US-AMGEN-USASP2015007800

PATIENT
  Age: 55 Year
  Sex: Male

DRUGS (2)
  1. ENBREL [Suspect]
     Active Substance: ETANERCEPT
     Indication: PSORIASIS
  2. ENBREL [Suspect]
     Active Substance: ETANERCEPT
     Indication: PSORIATIC ARTHROPATHY
     Dosage: 50 MG, QWK
     Route: 065
     Dates: start: 20130731

REACTIONS (14)
  - Sepsis [Recovered/Resolved]
  - Aspiration [Not Recovered/Not Resolved]
  - Psoriasis [Not Recovered/Not Resolved]
  - Arthritis infective [Recovered/Resolved]
  - Abnormal dreams [Recovered/Resolved]
  - Laryngeal disorder [Recovered/Resolved]
  - Aortic valve disease [Recovered/Resolved]
  - Vocal cord paralysis [Recovered/Resolved]
  - Fall [Unknown]
  - Hypotension [Unknown]
  - Pyrexia [Unknown]
  - Cough [Not Recovered/Not Resolved]
  - Coma [Recovered/Resolved]
  - Pneumonia [Recovered/Resolved]
